FAERS Safety Report 6651023-3 (Version None)
Quarter: 2010Q1

REPORT INFORMATION
  Report Type: 
  Country: None (occurrence: None)
  Receive Date: 20100325
  Receipt Date: 20100318
  Transmission Date: 20100710
  Serious: Yes (Life-Threatening, Hospitalization, Other)
  Sender: FDA-Public Use
  Company Number: JP-BAYER-200812631BYL

PATIENT
  Age: 57 Year
  Sex: Male
  Weight: 53 kg

DRUGS (9)
  1. NEXAVAR [Suspect]
     Indication: RENAL CELL CARCINOMA
     Dosage: UNIT DOSE: 200 MG
     Route: 048
     Dates: start: 20080528, end: 20080809
  2. NEXAVAR [Suspect]
     Dosage: UNIT DOSE: 200 MG
     Route: 048
     Dates: start: 20080810, end: 20080816
  3. NEXAVAR [Suspect]
     Dosage: UNIT DOSE: 200 MG
     Route: 048
     Dates: start: 20080817, end: 20080924
  4. SERENACE [Concomitant]
     Route: 048
     Dates: start: 20080515, end: 20080824
  5. PAXIL [Concomitant]
     Route: 048
     Dates: start: 20080414, end: 20080925
  6. ATARAX [Concomitant]
     Route: 048
     Dates: start: 20080515, end: 20080824
  7. DOGMATYL [Concomitant]
     Route: 048
     Dates: start: 20080509, end: 20080925
  8. PRIMPERAN INJ [Concomitant]
     Route: 048
     Dates: start: 20080513, end: 20080610
  9. FLOMOX [Concomitant]
     Indication: INFECTION PROPHYLAXIS
     Route: 048
     Dates: start: 20080924, end: 20080925

REACTIONS (10)
  - ALOPECIA [None]
  - BLOOD AMYLASE INCREASED [None]
  - CONSTIPATION [None]
  - DIARRHOEA [None]
  - FATIGUE [None]
  - GASTROINTESTINAL HAEMORRHAGE [None]
  - IDIOPATHIC THROMBOCYTOPENIC PURPURA [None]
  - MALAISE [None]
  - NAUSEA [None]
  - PALMAR-PLANTAR ERYTHRODYSAESTHESIA SYNDROME [None]
